FAERS Safety Report 7676384-8 (Version None)
Quarter: 2011Q3

REPORT INFORMATION
  Report Type: 
  Country: None (occurrence: None)
  Receive Date: 20110811
  Receipt Date: 20110808
  Transmission Date: 20111222
  Serious: Yes (Other)
  Sender: FDA-Public Use
  Company Number: US-PFIZER INC-2011154356

PATIENT
  Sex: Female

DRUGS (3)
  1. GEODON [Suspect]
     Dosage: UNK
  2. GEODON [Suspect]
     Dosage: UNK
     Dates: start: 20110613
  3. SEROQUEL [Suspect]
     Dosage: UNK
     Dates: end: 20110414

REACTIONS (2)
  - FEELING ABNORMAL [None]
  - VISUAL IMPAIRMENT [None]
